FAERS Safety Report 6170518-2 (Version None)
Quarter: 2009Q2

REPORT INFORMATION
  Report Type: 
  Country: None (occurrence: None)
  Receive Date: 20090428
  Receipt Date: 20090427
  Transmission Date: 20091009
  Serious: Yes (Hospitalization)
  Sender: FDA-Public Use
  Company Number: ES-BRISTOL-MYERS SQUIBB COMPANY-14576300

PATIENT
  Age: 75 Year
  Sex: Male

DRUGS (5)
  1. AMOXICILLIN [Suspect]
     Indication: RESPIRATORY TRACT INFECTION
     Route: 065
     Dates: start: 20070101
  2. PARACETAMOL [Suspect]
     Indication: RESPIRATORY TRACT INFECTION
     Route: 065
     Dates: start: 20070101
  3. IBUPROFEN [Suspect]
     Indication: RESPIRATORY TRACT INFECTION
     Route: 065
     Dates: start: 20070101
  4. CLARITHROMYCIN [Suspect]
     Indication: RESPIRATORY TRACT INFECTION
     Route: 065
     Dates: start: 20070101
  5. IMATINIB MESILATE [Concomitant]
     Indication: CHRONIC MYELOID LEUKAEMIA
     Route: 065
     Dates: start: 20040701, end: 20070201

REACTIONS (4)
  - ANAL ABSCESS [None]
  - APLASTIC ANAEMIA [None]
  - ENTEROCOCCAL INFECTION [None]
  - STENOTROPHOMONAS INFECTION [None]
